FAERS Safety Report 4421500-4 (Version None)
Quarter: 2004Q3

REPORT INFORMATION
  Report Type: 
  Country: None (occurrence: None)
  Receive Date: 20040709
  Receipt Date: 20031024
  Transmission Date: 20050211
  Serious: Yes (Other)
  Sender: FDA-Public Use
  Company Number: US-SHR-03-016413

PATIENT
  Age: 66 Year
  Sex: Male
  Weight: 77.1 kg

DRUGS (3)
  1. ULTRAVIST 300 [Suspect]
     Indication: ANGIOGRAM
     Dosage: 100 ML, 1 DOSE, INTRAVENOUS
     Route: 042
     Dates: start: 20031023, end: 20031023
  2. ULTRAVIST 300 [Suspect]
     Dosage: 20 ML, 1 DOSE, INTRAVENOUS
     Route: 042
     Dates: start: 20031023, end: 20031023
  3. BENADRYL [Concomitant]

REACTIONS (2)
  - CHEST PAIN [None]
  - TREMOR [None]
